FAERS Safety Report 17008065 (Version 1)
Quarter: 2019Q4

REPORT INFORMATION
  Report Type: Spontaneous
  Country: US (occurrence: US)
  Receive Date: 20191108
  Receipt Date: 20191108
  Transmission Date: 20200122
  Serious: Yes (Other)
  Sender: FDA-Public Use
  Company Number: US-ALKEM LABORATORIES LIMITED-US-ALKEM-2019-09277

PATIENT
  Age: 21 Year

DRUGS (1)
  1. LIDOCAINE. [Suspect]
     Active Substance: LIDOCAINE
     Indication: ANAESTHESIA
     Dosage: 360 MILLIGRAM
     Route: 065

REACTIONS (2)
  - Local anaesthetic systemic toxicity [Unknown]
  - Neurotoxicity [Unknown]
